FAERS Safety Report 19775879 (Version 3)
Quarter: 2022Q2

REPORT INFORMATION
  Report Type: Spontaneous
  Country: DE (occurrence: DE)
  Receive Date: 20210901
  Receipt Date: 20220621
  Transmission Date: 20220721
  Serious: Yes (Life-Threatening, Hospitalization)
  Sender: FDA-Public Use
  Company Number: DE-NOVARTISPH-NVSC2021DE196374

PATIENT
  Age: 57 Year
  Sex: Female

DRUGS (19)
  1. CARBOPLATIN [Suspect]
     Active Substance: CARBOPLATIN
     Indication: Ovarian cancer
     Dosage: 550 MG, Q3W
     Route: 042
     Dates: start: 20201119, end: 20201119
  2. CARBOPLATIN [Suspect]
     Active Substance: CARBOPLATIN
     Indication: Ovarian cancer
     Dosage: 530 MG, Q3W
     Route: 042
     Dates: start: 20201210, end: 20201210
  3. CARBOPLATIN [Suspect]
     Active Substance: CARBOPLATIN
     Dosage: 480 MG, Q3W
     Route: 042
     Dates: start: 20210104, end: 20210104
  4. CARBOPLATIN [Suspect]
     Active Substance: CARBOPLATIN
     Dosage: 500 MG, Q3W
     Route: 042
     Dates: start: 20210126, end: 20210126
  5. PACLITAXEL [Suspect]
     Active Substance: PACLITAXEL
     Indication: Ovarian cancer
     Dosage: 301 MG, Q3W
     Route: 042
     Dates: start: 20201119, end: 20201119
  6. PACLITAXEL [Suspect]
     Active Substance: PACLITAXEL
     Indication: Ovarian cancer
     Dosage: 301 MG, Q3W
     Route: 042
     Dates: start: 20201210, end: 20201210
  7. PACLITAXEL [Suspect]
     Active Substance: PACLITAXEL
     Dosage: 301 MG, Q3W
     Route: 042
     Dates: start: 20210104, end: 20210104
  8. PACLITAXEL [Suspect]
     Active Substance: PACLITAXEL
     Dosage: 300 MG, Q3W
     Route: 042
     Dates: start: 20210126, end: 20210126
  9. OLAPARIB [Suspect]
     Active Substance: OLAPARIB
     Indication: Ovarian cancer
     Dosage: UNK
     Route: 048
  10. OLAPARIB [Suspect]
     Active Substance: OLAPARIB
     Indication: Ovarian cancer
     Route: 048
  11. DURVALUMAB [Suspect]
     Active Substance: DURVALUMAB
     Indication: Ovarian cancer
     Dosage: 22 ML, Q3W
     Route: 042
     Dates: start: 20201210, end: 20201210
  12. DURVALUMAB [Suspect]
     Active Substance: DURVALUMAB
     Indication: Ovarian cancer
     Dosage: 22 ML, Q3W
     Route: 042
     Dates: start: 20210104, end: 20210104
  13. GRANISETRON [Concomitant]
     Active Substance: GRANISETRON
     Indication: Prophylactic chemotherapy
     Dosage: 2 MG, QD
     Route: 048
     Dates: start: 20201119
  14. DEXAMETHASONE [Concomitant]
     Active Substance: DEXAMETHASONE
     Indication: Prophylactic chemotherapy
     Dosage: 8 MG, QD
     Route: 048
     Dates: start: 20201119
  15. DIMETHINDENE [Concomitant]
     Active Substance: DIMETHINDENE
     Indication: Prophylactic chemotherapy
     Dosage: 4 MG, QD
     Route: 042
     Dates: start: 20201119
  16. LEVOTHYROXINE SODIUM\POTASSIUM IODIDE [Concomitant]
     Active Substance: LEVOTHYROXINE SODIUM\POTASSIUM IODIDE
     Indication: Hypothyroidism
     Dosage: 100 UG, QD
     Route: 048
     Dates: start: 1990
  17. BEVACIZUMAB [Concomitant]
     Active Substance: BEVACIZUMAB
     Indication: Ovarian cancer
     Dosage: 990 MG, Q3W
     Route: 042
     Dates: start: 20201210, end: 20201210
  18. BEVACIZUMAB [Concomitant]
     Active Substance: BEVACIZUMAB
     Indication: Ovarian cancer
     Dosage: 990 MG, Q3W
     Route: 042
     Dates: start: 20210104, end: 20210104
  19. BEVACIZUMAB [Concomitant]
     Active Substance: BEVACIZUMAB
     Dosage: 975 MG, Q3W
     Route: 042
     Dates: start: 20210126, end: 20210126

REACTIONS (1)
  - Alanine aminotransferase increased [Recovered/Resolved]

NARRATIVE: CASE EVENT DATE: 20210202
